FAERS Safety Report 7142404-2 (Version None)
Quarter: 2010Q4

REPORT INFORMATION
  Report Type: 
  Country: None (occurrence: None)
  Receive Date: 20101207
  Receipt Date: 20101129
  Transmission Date: 20110411
  Serious: Yes (Other)
  Sender: FDA-Public Use
  Company Number: US-PFIZER INC-2010159879

PATIENT
  Sex: Female
  Weight: 59 kg

DRUGS (3)
  1. EFFEXOR XR [Suspect]
     Indication: GENERALISED ANXIETY DISORDER
     Dosage: 37.5 MG, 1X/DAY
     Route: 048
     Dates: end: 20100701
  2. VENLAFAXINE [Suspect]
     Indication: GENERALISED ANXIETY DISORDER
     Dosage: 37.5 MG, 1X/DAY
     Route: 048
     Dates: start: 20100701
  3. ALPRAZOLAM [Concomitant]
     Dosage: UNK, AS NEEDED

REACTIONS (5)
  - CONCOMITANT DISEASE AGGRAVATED [None]
  - HYPERTENSION [None]
  - PANIC ATTACK [None]
  - STRESS [None]
  - WEIGHT INCREASED [None]
